FAERS Safety Report 11153013 (Version 2)
Quarter: 2015Q2

REPORT INFORMATION
  Report Type: Spontaneous
  Country: JP (occurrence: JP)
  Receive Date: 20150601
  Receipt Date: 20150609
  Transmission Date: 20150821
  Serious: No
  Sender: FDA-Public Use
  Company Number: PHJP2015JP006761

PATIENT
  Age: 80 Year
  Sex: Male

DRUGS (2)
  1. ONBREZ INHALATION CAPSUL [Suspect]
     Active Substance: INDACATEROL
     Indication: CHRONIC OBSTRUCTIVE PULMONARY DISEASE
     Dosage: 150 UG, QD
     Route: 048
  2. ONBREZ INHALATION CAPSUL [Suspect]
     Active Substance: INDACATEROL
     Dosage: 150 UG, QD
     Route: 055

REACTIONS (2)
  - Abdominal discomfort [Unknown]
  - Incorrect route of drug administration [Recovered/Resolved]
